FAERS Safety Report 11359151 (Version 1)
Quarter: 2015Q3

REPORT INFORMATION
  Report Type: Spontaneous
  Country: US (occurrence: US)
  Receive Date: 20150807
  Receipt Date: 20150807
  Transmission Date: 20151125
  Serious: No
  Sender: FDA-Public Use
  Company Number: US-TEVA-583855USA

PATIENT
  Age: 44 Year
  Sex: Male
  Weight: 102.15 kg

DRUGS (2)
  1. PROVIGIL [Suspect]
     Active Substance: MODAFINIL
     Indication: ATTENTION DEFICIT/HYPERACTIVITY DISORDER
     Route: 065
  2. ZYRTEC [Concomitant]
     Active Substance: CETIRIZINE HYDROCHLORIDE
     Indication: HYPERSENSITIVITY

REACTIONS (3)
  - Drug diversion [Recovered/Resolved]
  - Product use issue [Recovered/Resolved]
  - Therapeutic response unexpected [Recovered/Resolved]
